FAERS Safety Report 18319796 (Version 1)
Quarter: 2020Q3

REPORT INFORMATION
  Report Type: Spontaneous
  Country: US (occurrence: US)
  Receive Date: 20200928
  Receipt Date: 20200928
  Transmission Date: 20201103
  Serious: No
  Sender: FDA-Public Use
  Company Number: US-ASTRAZENECA-2020SF21087

PATIENT

DRUGS (10)
  1. XELJANZ [Suspect]
     Active Substance: TOFACITINIB CITRATE
     Route: 048
  2. CRESTOR [Suspect]
     Active Substance: ROSUVASTATIN CALCIUM
     Route: 048
  3. ARMOUR THYROID [Concomitant]
     Active Substance: THYROID, PORCINE
  4. CODEINE [Suspect]
     Active Substance: CODEINE
     Route: 065
  5. PREDNISONE. [Concomitant]
     Active Substance: PREDNISONE
  6. ATORVASTATIN [Concomitant]
     Active Substance: ATORVASTATIN
  7. LEFLUNOMIDE. [Concomitant]
     Active Substance: LEFLUNOMIDE
  8. COENZYME Q10 [Concomitant]
     Active Substance: DIETARY SUPPLEMENT\UBIDECARENONE
  9. AMOXILIN [Suspect]
     Active Substance: AMOXICILLIN
     Route: 065
  10. ASA [Concomitant]
     Active Substance: ASPIRIN

REACTIONS (3)
  - Rash [Unknown]
  - Mental disorder [Unknown]
  - Diarrhoea [Unknown]
